FAERS Safety Report 26023965 (Version 2)
Quarter: 2025Q4

REPORT INFORMATION
  Report Type: Report from Study
  Country: US (occurrence: US)
  Receive Date: 20251111
  Receipt Date: 20251115
  Transmission Date: 20260117
  Serious: Yes (Hospitalization)
  Sender: ABBVIE
  Company Number: US-ABBVIE-6534957

PATIENT
  Age: 61 Year
  Sex: Female

DRUGS (2)
  1. VENCLEXTA [Suspect]
     Active Substance: VENETOCLAX
     Indication: Acute myeloid leukaemia
     Dosage: 1 TABLET BY MOUTH ONCE DAILY FOR 14 DAYS, THEN 2 WEEKS OFF.?END DATE- 2025
     Route: 048
     Dates: start: 20250905
  2. VENCLEXTA [Suspect]
     Active Substance: VENETOCLAX
     Indication: Acute myeloid leukaemia
     Dosage: DRUG START DATE: 2025
     Route: 048

REACTIONS (4)
  - Dehydration [Unknown]
  - Vomiting [Unknown]
  - Gastroenteritis viral [Unknown]
  - Urinary tract infection [Unknown]

NARRATIVE: CASE EVENT DATE: 20250101
